FAERS Safety Report 8890200 (Version 1)
Quarter: 2012Q4

REPORT INFORMATION
  Report Type: Spontaneous
  Country: FR (occurrence: None)
  Receive Date: 20121031
  Receipt Date: 20121031
  Transmission Date: 20130627
  Serious: Yes (Death, Hospitalization)
  Sender: FDA-Public Use
  Company Number: FR 1996 0025

PATIENT
  Age: 69 Year
  Sex: Male

DRUGS (1)
  1. LIPIODOL (ETHIODIZED OIL) (ETHIODIZED OIL) [Suspect]
     Dosage: UNK  (1 in 1 D)
     Route: 027
     Dates: start: 19960209, end: 19960209

REACTIONS (3)
  - Altered state of consciousness [None]
  - Coma [None]
  - Muscle contractions involuntary [None]
